FAERS Safety Report 17455735 (Version 1)
Quarter: 2020Q1

REPORT INFORMATION
  Report Type: Spontaneous
  Country: US (occurrence: US)
  Receive Date: 20200225
  Receipt Date: 20200225
  Transmission Date: 20200409
  Serious: No
  Sender: FDA-Public Use
  Company Number: None

PATIENT
  Age: 45 Year
  Sex: Female

DRUGS (2)
  1. PIQRAY [Suspect]
     Active Substance: ALPELISIB
     Dates: start: 20200127, end: 20200221
  2. FULVESTRANT. [Concomitant]
     Active Substance: FULVESTRANT
     Dates: start: 20200130

REACTIONS (6)
  - Pain [None]
  - Malaise [None]
  - Pyrexia [None]
  - Fatigue [None]
  - Rash [None]
  - Skin burning sensation [None]

NARRATIVE: CASE EVENT DATE: 20200210
